FAERS Safety Report 21961383 (Version 2)
Quarter: 2023Q1

REPORT INFORMATION
  Report Type: Spontaneous
  Country: CA (occurrence: CA)
  Receive Date: 20230207
  Receipt Date: 20230222
  Transmission Date: 20230418
  Serious: Yes (Other)
  Sender: FDA-Public Use
  Company Number: CA-PFIZER INC-202300045538

PATIENT
  Age: 48 Year
  Sex: Female

DRUGS (3)
  1. ABRILADA [Suspect]
     Active Substance: ADALIMUMAB-AFZB
     Indication: Crohn^s disease
     Dosage: 40 MG, PREFILLED PEN, 40 MG EVERY OTHER WEEK
     Route: 058
     Dates: start: 20220501
  2. ABRILADA [Suspect]
     Active Substance: ADALIMUMAB-AFZB
     Dosage: 40 MG, PREFILLED PEN, 40 MG EVERY OTHER WEEK
     Route: 058
     Dates: start: 20230125
  3. ABRILADA [Suspect]
     Active Substance: ADALIMUMAB-AFZB
     Dosage: 40 MG, PREFILLED PEN, 40 MG EVERY OTHER WEEK
     Route: 058
     Dates: start: 20230129

REACTIONS (4)
  - Pulmonary oedema [Not Recovered/Not Resolved]
  - Condition aggravated [Recovered/Resolved]
  - Discomfort [Not Recovered/Not Resolved]
  - Intentional product misuse [Not Recovered/Not Resolved]

NARRATIVE: CASE EVENT DATE: 20220101
